FAERS Safety Report 7038582-6 (Version None)
Quarter: 2010Q4

REPORT INFORMATION
  Report Type: 
  Country: None (occurrence: None)
  Receive Date: 20101011
  Receipt Date: 20100727
  Transmission Date: 20110411
  Serious: Yes (Hospitalization, Other)
  Sender: FDA-Public Use
  Company Number: US-PFIZER INC-2006051801

PATIENT
  Sex: Male

DRUGS (14)
  1. NEURONTIN [Suspect]
     Indication: PAIN
     Dosage: 300 MG, UNK
     Route: 048
     Dates: start: 20010612
  2. GABITRIL [Concomitant]
     Dosage: 4 MG, 1X/DAY
  3. PERCOCET [Concomitant]
     Dosage: 10/325 EVERY FOUR TO SIX HOURS AS NEEDED
  4. PREDNISONE [Concomitant]
     Dosage: 4 MG, AS DIRECTED
  5. TRAMADOL [Concomitant]
     Dosage: 40 MG, ONE OR TWO EVERY FOUR TO SIX HOURS AS NEEDED
  6. ZYRTEC [Concomitant]
     Dosage: 10 MG, 1X/DAY
  7. BEXTRA [Concomitant]
     Dosage: 20 MG, 1X/DAY
  8. MONTELUKAST [Concomitant]
     Dosage: 10 MG, 1X/DAY
  9. ALBUTEROL [Concomitant]
     Dosage: UNK
  10. SKELAXIN [Concomitant]
     Indication: PAIN
     Dosage: 300 MG, UNK
  11. SKELAXIN [Concomitant]
     Indication: MUSCLE SPASMS
  12. XANAX [Concomitant]
     Dosage: UNK
  13. VALIUM [Concomitant]
     Dosage: UNK
  14. CLONIDINE [Concomitant]
     Dosage: UNK

REACTIONS (2)
  - DRUG INEFFECTIVE [None]
  - SUICIDE ATTEMPT [None]
